FAERS Safety Report 15535977 (Version 1)
Quarter: 2018Q4

REPORT INFORMATION
  Report Type: Spontaneous
  Country: US (occurrence: US)
  Receive Date: 20181022
  Receipt Date: 20181022
  Transmission Date: 20190205
  Serious: Yes (Hospitalization, Other)
  Sender: FDA-Public Use
  Company Number: US-HIKMA PHARMACEUTICALS USA INC.-US-H14001-18-07939

PATIENT
  Age: 82 Year
  Sex: Female
  Weight: 134 kg

DRUGS (1)
  1. LEVOFLOXACIN. [Suspect]
     Active Substance: LEVOFLOXACIN
     Indication: PNEUMONIA
     Dosage: IN TOTAL
     Route: 042

REACTIONS (3)
  - Myoclonus [Recovered/Resolved]
  - Headache [Unknown]
  - Neurotoxicity [Recovered/Resolved]
